FAERS Safety Report 12668826 (Version 1)
Quarter: 2016Q3

REPORT INFORMATION
  Report Type: Spontaneous
  Country: US (occurrence: US)
  Receive Date: 20160819
  Receipt Date: 20160819
  Transmission Date: 20161109
  Serious: Yes (Other)
  Sender: FDA-Public Use
  Company Number: US-ASTELLAS-2016US008028

PATIENT
  Age: 51 Year
  Sex: Female

DRUGS (4)
  1. NORMAL SALINE [Suspect]
     Active Substance: SODIUM CHLORIDE
     Dosage: UNK UNK, TWICE DAILY
     Route: 065
  2. AMBISOME [Suspect]
     Active Substance: AMPHOTERICIN B
     Indication: MENINGITIS CRYPTOCOCCAL
     Route: 065
  3. NORMAL SALINE [Suspect]
     Active Substance: SODIUM CHLORIDE
     Indication: MENINGITIS CRYPTOCOCCAL
     Dosage: UNK UNK, CONTINUOUS
     Route: 065
  4. IBUPROFEN. [Suspect]
     Active Substance: IBUPROFEN
     Indication: PRODUCT USED FOR UNKNOWN INDICATION
     Dosage: UNK, UNKNOWN FREQ.
     Route: 065

REACTIONS (6)
  - Blood creatinine increased [Unknown]
  - Nephropathy toxic [Unknown]
  - Wrong technique in product usage process [Unknown]
  - Drug interaction [Unknown]
  - Headache [Unknown]
  - Product preparation error [Unknown]
